FAERS Safety Report 8390811-2 (Version None)
Quarter: 2012Q2

REPORT INFORMATION
  Report Type: 
  Country: None (occurrence: None)
  Receive Date: 20120529
  Receipt Date: 20120518
  Transmission Date: 20120825
  Serious: Yes (Other)
  Sender: FDA-Public Use
  Company Number: JP-ASTELLAS-2011JP003625

PATIENT
  Age: 26 Year
  Sex: Female
  Weight: 54.9 kg

DRUGS (26)
  1. PREDNISOLONE [Concomitant]
     Dosage: 15 MG, UNKNOWN/D
     Route: 048
     Dates: start: 20100303, end: 20100525
  2. FUNGIZONE [Concomitant]
     Dosage: UNK
     Route: 048
     Dates: start: 20090610, end: 20100202
  3. PREDNISOLONE [Concomitant]
     Dosage: 30 MG, UNKNOWN/D
     Route: 048
     Dates: start: 20090610, end: 20091012
  4. LOXONIN [Concomitant]
     Dosage: 60 MG, PRN
     Route: 048
  5. TACROLIMUS [Suspect]
     Dosage: 3 MG, UNKNOWN/D
     Route: 048
     Dates: start: 20090601, end: 20091012
  6. VITAMIN B12 [Concomitant]
     Indication: NEUROPATHY PERIPHERAL
     Dosage: 1500 UG, UNKNOWN/D
     Route: 048
     Dates: start: 20101109
  7. PREDNISOLONE [Concomitant]
     Dosage: 10 MG, UNKNOWN/D
     Route: 048
     Dates: start: 20101110
  8. LENDORMIN [Concomitant]
     Dosage: UNK
     Route: 048
     Dates: end: 20100405
  9. ASPIRIN [Concomitant]
     Indication: LUPUS NEPHRITIS
     Dosage: 100 MG, UNKNOWN/D
     Route: 048
     Dates: start: 20090602, end: 20101026
  10. OMEPRAZOLE [Concomitant]
     Dosage: 20 MG, UNKNOWN/D
     Route: 048
  11. PREDNISOLONE [Concomitant]
     Dosage: 17.5 MG, UNKNOWN/D
     Route: 048
     Dates: start: 20100106, end: 20100302
  12. ALLOPURINOL [Concomitant]
     Indication: LUPUS NEPHRITIS
     Dosage: 50 MG, UNKNOWN/D
     Route: 048
     Dates: end: 20100929
  13. ATELEC [Concomitant]
     Dosage: 20 MG, UNKNOWN/D
     Route: 048
  14. MUCOSTA [Concomitant]
     Dosage: 300 MG, UNKNOWN/D
     Route: 048
  15. TACROLIMUS [Suspect]
     Indication: LUPUS NEPHRITIS
     Dosage: 4 MG, UNKNOWN/D
     Route: 048
     Dates: start: 20091013, end: 20100927
  16. LASIX [Concomitant]
     Indication: LUPUS NEPHRITIS
     Dosage: UNK
     Route: 048
     Dates: end: 20100302
  17. DOXAZOSIN MESYLATE [Concomitant]
     Dosage: 2 MG, UNKNOWN/D
     Route: 048
     Dates: start: 20100202, end: 20100928
  18. PREDNISOLONE [Concomitant]
     Indication: LUPUS NEPHRITIS
     Dosage: 40 MG, UNKNOWN/D
     Route: 048
     Dates: start: 20090511, end: 20090609
  19. PREDNISOLONE [Concomitant]
     Dosage: 25 MG, UNKNOWN/D
     Route: 048
     Dates: start: 20091013, end: 20091109
  20. PREDNISOLONE [Concomitant]
     Dosage: 12.5 MG, UNKNOWN/D
     Route: 048
     Dates: start: 20100526, end: 20101107
  21. LENDORMIN [Concomitant]
     Dosage: 0.25 MG, UNKNOWN/D
     Route: 048
  22. GASMOTIN [Concomitant]
     Dosage: 15 MG, UNKNOWN/D
     Route: 048
     Dates: start: 20100427
  23. TACROLIMUS [Suspect]
     Dosage: 3 MG, UNKNOWN/D
     Route: 048
     Dates: start: 20100928, end: 20110111
  24. PREDNISOLONE [Concomitant]
     Dosage: 20 MG, UNKNOWN/D
     Route: 048
     Dates: start: 20091110, end: 20100105
  25. LIVALO [Concomitant]
     Dosage: 2 MG, UNKNOWN/D
     Route: 048
     Dates: start: 20090617
  26. MICARDIS [Concomitant]
     Dosage: 80 MG, UNKNOWN/D
     Route: 048
     Dates: start: 20090626

REACTIONS (2)
  - EATING DISORDER [None]
  - HYPOAESTHESIA [None]
